FAERS Safety Report 4341438-0 (Version None)
Quarter: 2004Q2

REPORT INFORMATION
  Report Type: 
  Country: None (occurrence: None)
  Receive Date: 20040415
  Receipt Date: 20040331
  Transmission Date: 20050107
  Serious: Yes (Hospitalization, Other)
  Sender: FDA-Public Use
  Company Number: 2004207001PT

PATIENT
  Age: 53 Year
  Sex: Female

DRUGS (1)
  1. ESTRING [Suspect]
     Indication: HORMONE REPLACEMENT THERAPY
     Dosage: 1.5 MG/TWICE A WEEK

REACTIONS (5)
  - BLADDER CANCER [None]
  - ENDOMETRIAL CANCER [None]
  - METASTASES TO KIDNEY [None]
  - METASTASES TO LARGE INTESTINE [None]
  - METASTASES TO LYMPH NODES [None]
